FAERS Safety Report 8094711-7 (Version None)
Quarter: 2012Q1

REPORT INFORMATION
  Report Type: 
  Country: None (occurrence: None)
  Receive Date: 20120129
  Receipt Date: 20111214
  Transmission Date: 20120608
  Serious: No
  Sender: FDA-Public Use
  Company Number: US-ABBOTT-11P-163-0885282-00

PATIENT
  Sex: Female
  Weight: 80.358 kg

DRUGS (8)
  1. VESICAR [Concomitant]
     Indication: PRODUCT USED FOR UNKNOWN INDICATION
  2. LYRICA [Concomitant]
     Indication: PRODUCT USED FOR UNKNOWN INDICATION
  3. REQUIP [Concomitant]
     Indication: MUSCLE SPASMS
  4. HYDROXYZINE [Concomitant]
     Indication: SLEEP DISORDER
  5. MECLIZINE [Concomitant]
     Indication: VERTIGO
  6. LEVOTHYROXINE SODIUM [Concomitant]
     Indication: HYPOTHYROIDISM
  7. HUMIRA [Suspect]
     Indication: PSORIASIS
     Route: 058
     Dates: start: 20070101
  8. TRIAMTERENE AND HYDROCHLOROTHIAZIDE [Concomitant]
     Indication: FLUID RETENTION

REACTIONS (3)
  - NASAL CONGESTION [None]
  - INJECTION SITE PAIN [None]
  - NASOPHARYNGITIS [None]
